FAERS Safety Report 22173751 (Version 5)
Quarter: 2023Q4

REPORT INFORMATION
  Report Type: Spontaneous
  Country: US (occurrence: US)
  Receive Date: 20230404
  Receipt Date: 20231205
  Transmission Date: 20240110
  Serious: No
  Sender: FDA-Public Use
  Company Number: US-BRISTOL-MYERS SQUIBB COMPANY-2023-047522

PATIENT
  Age: 91 Year
  Sex: Female

DRUGS (1)
  1. REVLIMID [Suspect]
     Active Substance: LENALIDOMIDE
     Indication: Plasma cell myeloma
     Route: 048

REACTIONS (6)
  - Diarrhoea [Unknown]
  - Fatigue [Unknown]
  - Pyrexia [Unknown]
  - Cough [Unknown]
  - Urinary tract infection [Unknown]
  - COVID-19 [Recovering/Resolving]
